FAERS Safety Report 7931834-4 (Version None)
Quarter: 2011Q4

REPORT INFORMATION
  Report Type: 
  Country: None (occurrence: None)
  Receive Date: 20111121
  Receipt Date: 20111115
  Transmission Date: 20120403
  Serious: Yes (Hospitalization)
  Sender: FDA-Public Use
  Company Number: CA-SP-2010-06696

PATIENT
  Sex: Female

DRUGS (7)
  1. REACTINE [Concomitant]
     Indication: HYPERSENSITIVITY
  2. VENTOLIN [Concomitant]
  3. TUBERCULIN NOS [Suspect]
     Indication: TUBERCULIN TEST
     Route: 023
     Dates: start: 20000921, end: 20000921
  4. NAPROSYN [Concomitant]
  5. MEFENAMIC ACID [Concomitant]
     Indication: DYSMENORRHOEA
  6. TD POLIO ADS [Suspect]
     Indication: IMMUNISATION
     Dosage: NOT REPORTED
     Route: 030
     Dates: start: 20000921, end: 20000921
  7. BECLOFORTE [Concomitant]

REACTIONS (23)
  - DIZZINESS [None]
  - FIBROMYALGIA [None]
  - ENDOMETRIOSIS [None]
  - INSOMNIA [None]
  - DYSMENORRHOEA [None]
  - DEHYDRATION [None]
  - PALPITATIONS [None]
  - DYSGEUSIA [None]
  - IRRITABLE BOWEL SYNDROME [None]
  - NAUSEA [None]
  - HEADACHE [None]
  - DEPRESSION [None]
  - VOMITING [None]
  - ARTHRITIS [None]
  - HAIR TEXTURE ABNORMAL [None]
  - TREMOR [None]
  - ABDOMINAL DISCOMFORT [None]
  - DECREASED APPETITE [None]
  - BURNING SENSATION [None]
  - PAIN [None]
  - ANXIETY DISORDER [None]
  - CHRONIC FATIGUE SYNDROME [None]
  - DRY SKIN [None]
